FAERS Safety Report 20408442 (Version 1)
Quarter: 2022Q1

REPORT INFORMATION
  Report Type: Spontaneous
  Country: US (occurrence: None)
  Receive Date: 20220201
  Receipt Date: 20220201
  Transmission Date: 20220423
  Serious: Yes (Other)
  Sender: FDA-Public Use
  Company Number: US-ROCHE-3006659

PATIENT

DRUGS (1)
  1. OCREVUS [Suspect]
     Active Substance: OCRELIZUMAB
     Indication: Multiple sclerosis
     Route: 065

REACTIONS (7)
  - Oral herpes [Unknown]
  - Cough [Unknown]
  - Rhinorrhoea [Unknown]
  - Crohn^s disease [Unknown]
  - Nephropathy [Unknown]
  - Blood creatinine increased [Unknown]
  - Sleep disorder [Unknown]
